FAERS Safety Report 17487046 (Version 2)
Quarter: 2020Q1

REPORT INFORMATION
  Report Type: Spontaneous
  Country: US (occurrence: US)
  Receive Date: 20200303
  Receipt Date: 20200316
  Transmission Date: 20200409
  Serious: Yes (Death, Life-Threatening, Other)
  Sender: FDA-Public Use
  Company Number: US-KARYOPHARM-2020KPT000203

PATIENT

DRUGS (1)
  1. XPOVIO [Suspect]
     Active Substance: SELINEXOR
     Indication: PLASMA CELL MYELOMA
     Dosage: 80 MG, 2X/WEEK
     Route: 048
     Dates: start: 20200217, end: 20200303

REACTIONS (10)
  - Death [Fatal]
  - Diarrhoea [Unknown]
  - Unresponsive to stimuli [Unknown]
  - Decreased appetite [Unknown]
  - Asthenia [Unknown]
  - Dyspnoea [Unknown]
  - Nausea [Unknown]
  - Hypercreatininaemia [Unknown]
  - Leukopenia [Unknown]
  - Renal failure [Unknown]

NARRATIVE: CASE EVENT DATE: 202002
